FAERS Safety Report 5247566-X (Version None)
Quarter: 2007Q1

REPORT INFORMATION
  Report Type: 
  Country: None (occurrence: None)
  Receive Date: 20070227
  Receipt Date: 20070222
  Transmission Date: 20070707
  Serious: Yes (Hospitalization)
  Sender: FDA-Public Use
  Company Number: FR-AVENTIS-200710241FR

PATIENT
  Age: 54 Year
  Sex: Female
  Weight: 82 kg

DRUGS (3)
  1. RODOGYL [Suspect]
     Route: 048
     Dates: start: 20061121
  2. DOLIPRANE [Concomitant]
     Route: 048
  3. ADVIL [Concomitant]
     Route: 048
     Dates: start: 20061121

REACTIONS (6)
  - ACUTE GENERALISED EXANTHEMATOUS PUSTULOSIS [None]
  - ERYTHEMA [None]
  - HEPATOCELLULAR DAMAGE [None]
  - LEUKOCYTOSIS [None]
  - PYREXIA [None]
  - RASH PUSTULAR [None]
